FAERS Safety Report 7556281-9 (Version None)
Quarter: 2011Q2

REPORT INFORMATION
  Report Type: 
  Country: None (occurrence: None)
  Receive Date: 20110620
  Receipt Date: 20110619
  Transmission Date: 20111010
  Serious: Yes (Other)
  Sender: FDA-Public Use
  Company Number: US-PFIZER INC-2011134326

PATIENT
  Age: 87 Year
  Sex: Female
  Weight: 63.946 kg

DRUGS (3)
  1. NEURONTIN [Suspect]
     Indication: NEUROPATHY PERIPHERAL
     Dosage: FOUR CAPSULES DAILY
     Route: 048
     Dates: end: 20110101
  2. NEURONTIN [Suspect]
     Dosage: TWO CAPSULES DAILY
     Route: 048
     Dates: start: 20110101
  3. ANASTRAZOLE [Suspect]
     Indication: NEOPLASM MALIGNANT
     Dosage: UNK
     Route: 048

REACTIONS (2)
  - OSTEOPOROSIS [None]
  - INCORRECT DOSE ADMINISTERED [None]
